FAERS Safety Report 7971814-6 (Version None)
Quarter: 2011Q4

REPORT INFORMATION
  Report Type: 
  Country: None (occurrence: None)
  Receive Date: 20111122
  Receipt Date: 20110630
  Transmission Date: 20120403
  Serious: No
  Sender: FDA-Public Use
  Company Number: PHHY2011US53149

PATIENT
  Age: 28 Year
  Sex: Female

DRUGS (2)
  1. PERCOCET [Concomitant]
  2. GILENYA [Suspect]
     Indication: MULTIPLE SCLEROSIS
     Dosage: 0.5 MG, QD, ORAL
     Route: 048
     Dates: start: 20110517

REACTIONS (4)
  - FATIGUE [None]
  - VOMITING [None]
  - HEART RATE DECREASED [None]
  - NAUSEA [None]
